FAERS Safety Report 9537468 (Version 1)
Quarter: 2013Q3

REPORT INFORMATION
  Report Type: Spontaneous
  Country: CO (occurrence: CO)
  Receive Date: 20130919
  Receipt Date: 20130919
  Transmission Date: 20140515
  Serious: Yes (Other)
  Sender: FDA-Public Use
  Company Number: CO-JNJFOC-20130907389

PATIENT
  Sex: Male

DRUGS (3)
  1. REMICADE [Suspect]
     Indication: ANKYLOSING SPONDYLITIS
     Route: 042
  2. REMICADE [Suspect]
     Indication: ANKYLOSING SPONDYLITIS
     Route: 042
     Dates: start: 20121221
  3. CLEMASTINE [Concomitant]
     Indication: PREMEDICATION
     Route: 042

REACTIONS (5)
  - Hypothermia [Recovered/Resolved]
  - Blood pressure decreased [Recovered/Resolved]
  - Infusion related reaction [Recovering/Resolving]
  - Pallor [Recovering/Resolving]
  - Bone pain [Recovering/Resolving]
